FAERS Safety Report 8428341-1 (Version None)
Quarter: 2012Q2

REPORT INFORMATION
  Report Type: 
  Country: None (occurrence: None)
  Receive Date: 20120612
  Receipt Date: 20120606
  Transmission Date: 20120825
  Serious: Yes (Hospitalization)
  Sender: FDA-Public Use
  Company Number: US-AMGEN-USASP2012035386

PATIENT
  Age: 49 Year
  Sex: Female

DRUGS (1)
  1. ENBREL [Suspect]
     Indication: RHEUMATOID ARTHRITIS
     Dosage: 25 MG, 2 TIMES/WK
     Dates: start: 19970901

REACTIONS (7)
  - HOT FLUSH [None]
  - HYPERSENSITIVITY [None]
  - HYSTERECTOMY [None]
  - INFECTION [None]
  - HYPERHIDROSIS [None]
  - SINUSITIS [None]
  - URTICARIA [None]
